FAERS Safety Report 14352083 (Version 1)
Quarter: 2018Q1

REPORT INFORMATION
  Report Type: Spontaneous
  Country: US (occurrence: US)
  Receive Date: 20180103
  Receipt Date: 20180103
  Transmission Date: 20180509
  Serious: Yes (Other)
  Sender: FDA-Public Use
  Company Number: None

PATIENT
  Age: 92 Year
  Sex: Female

DRUGS (1)
  1. FORTEO [Suspect]
     Active Substance: TERIPARATIDE
     Indication: OSTEOPOROSIS
     Route: 058
     Dates: start: 20170816

REACTIONS (4)
  - Fatigue [None]
  - Asthenia [None]
  - Musculoskeletal pain [None]
  - Musculoskeletal discomfort [None]

NARRATIVE: CASE EVENT DATE: 20171215
